FAERS Safety Report 9520722 (Version 1)
Quarter: 2013Q1

REPORT INFORMATION
  Report Type: Spontaneous
  Country: US (occurrence: None)
  Receive Date: 20130305
  Receipt Date: 20130305
  Transmission Date: 20140127
  Serious: Yes (Other)
  Sender: FDA-Public Use
  Company Number: 163-21880-12012353

PATIENT
  Age: 54 Year
  Sex: Male

DRUGS (8)
  1. REVLIMID [Suspect]
     Indication: PLASMA CELL MYELOMA
     Dosage: QD X 3 WEEKS, EVERY 28 DAYS
     Route: 048
     Dates: start: 20110323, end: 20111220
  2. KEPPRA (LEVETIRACETAM) [Concomitant]
  3. DEXAMETHASONE (DEXAMETHASONE) [Concomitant]
  4. LEVOTHYROXINE (LEVOTHYROXINE) [Concomitant]
  5. FLUDROCORTISONE (FLUDROCORTISONE) [Concomitant]
  6. PANTOPRAZOLE (PANTOPRAZOLE) [Concomitant]
  7. LIOTHYRONINE (LIOTHYRONINE) [Concomitant]
  8. ANDROGEL (TESTOSTERONE) [Concomitant]

REACTIONS (1)
  - Pulmonary embolism [None]
